FAERS Safety Report 4611722-1 (Version None)
Quarter: 2005Q2

REPORT INFORMATION
  Report Type: 
  Country: None (occurrence: None)
  Receive Date: 20050311
  Receipt Date: 20041102
  Transmission Date: 20051028
  Serious: No
  Sender: FDA-Public Use
  Company Number: 2004-BP-10249BP

PATIENT
  Age: 72 Year
  Sex: Female

DRUGS (9)
  1. SPIRIVA [Suspect]
     Indication: CHRONIC OBSTRUCTIVE PULMONARY DISEASE
     Dosage: 18 MCG (18 MCG), IH
     Route: 055
     Dates: start: 20040701
  2. SPIRIVA [Suspect]
     Indication: FUNCTIONAL RESIDUAL CAPACITY DECREASED
  3. TIAZAC [Concomitant]
  4. LIPITOR [Concomitant]
  5. LEVOXYL (LEVOTHYROXINE SOIDUM) [Concomitant]
  6. COUMADIN [Concomitant]
  7. HYDROCHLORTHYIAZIDE (HYDROCHLOROTHIAZIDE) [Concomitant]
  8. ZETIA [Concomitant]
  9. DIOVAN [Concomitant]

REACTIONS (1)
  - AGEUSIA [None]
